FAERS Safety Report 4500093-7 (Version None)
Quarter: 2004Q4

REPORT INFORMATION
  Report Type: 
  Country: None (occurrence: None)
  Receive Date: 20041112
  Receipt Date: 20041105
  Transmission Date: 20050328
  Serious: Yes (Other)
  Sender: FDA-Public Use
  Company Number: US-GLAXOSMITHKLINE-A0532878A

PATIENT
  Age: 34 Year
  Sex: Male

DRUGS (2)
  1. PAXIL [Suspect]
     Indication: DEPRESSION
     Dosage: 30MG IN THE MORNING
     Route: 048
  2. BEER [Suspect]
     Indication: DRUG USE FOR UNKNOWN INDICATION
     Dosage: 1BT AT NIGHT
     Route: 048

REACTIONS (2)
  - AGGRESSION [None]
  - DRUG INTERACTION [None]
